FAERS Safety Report 4748529-0 (Version None)
Quarter: 2005Q3

REPORT INFORMATION
  Report Type: 
  Country: None (occurrence: None)
  Receive Date: 20050818
  Receipt Date: 20050805
  Transmission Date: 20060218
  Serious: Yes (Other)
  Sender: FDA-Public Use
  Company Number: 2005111206

PATIENT
  Age: 28 Year
  Sex: Male
  Weight: 79.3795 kg

DRUGS (3)
  1. COOL MINT LISTERINE (MENTHOL, METHYL SALICYLATE, EUCALYPTOL, THYMOL) [Suspect]
     Indication: INTENTIONAL MISUSE
     Dosage: 500 ML ONCE, ORAL
     Route: 048
     Dates: start: 20050804, end: 20050804
  2. COOL MINT LISTERINE (MENTHOL, METHYL SALICYLATE, EUCALYPTOL, THYMOL) [Suspect]
     Indication: OVERDOSE
     Dosage: 500 ML ONCE, ORAL
     Route: 048
     Dates: start: 20050804, end: 20050804
  3. ETHANOL (ETHANOL) [Suspect]
     Dosage: ORAL
     Route: 048
     Dates: start: 20050804

REACTIONS (9)
  - ALCOHOL USE [None]
  - CHEST PAIN [None]
  - DYSPEPSIA [None]
  - FEAR [None]
  - HYPERTENSION [None]
  - HYPOAESTHESIA [None]
  - INTENTIONAL MISUSE [None]
  - MALAISE [None]
  - REFUSAL OF TREATMENT BY PATIENT [None]
